FAERS Safety Report 6341939-X (Version None)
Quarter: 2009Q3

REPORT INFORMATION
  Report Type: 
  Country: None (occurrence: None)
  Receive Date: 20090904
  Receipt Date: 20090902
  Transmission Date: 20100115
  Serious: Yes (Death, Hospitalization)
  Sender: FDA-Public Use
  Company Number: PHHO2008US07908

PATIENT
  Sex: Male
  Weight: 71 kg

DRUGS (2)
  1. RAD 666 RAD+TAB+CMAS [Suspect]
     Indication: GLIOBLASTOMA MULTIFORME
     Dosage: 10 MG, QD
     Route: 048
     Dates: start: 20080513, end: 20080622
  2. DECADRON [Suspect]
     Indication: OEDEMA
     Dosage: 2 MG, TID
     Route: 048
     Dates: start: 20070101

REACTIONS (14)
  - ASTHENIA [None]
  - CONCOMITANT DISEASE PROGRESSION [None]
  - DYSPNOEA [None]
  - DYSURIA [None]
  - HAEMATURIA [None]
  - HEMIPARESIS [None]
  - LETHARGY [None]
  - LUNG INFILTRATION [None]
  - LUNG NEOPLASM [None]
  - NEUROPATHY PERIPHERAL [None]
  - OEDEMA PERIPHERAL [None]
  - PNEUMOCYSTIS JIROVECI PNEUMONIA [None]
  - PNEUMONIA PRIMARY ATYPICAL [None]
  - PYREXIA [None]
